FAERS Safety Report 4535367-7 (Version None)
Quarter: 2004Q4

REPORT INFORMATION
  Report Type: 
  Country: None (occurrence: None)
  Receive Date: 20041222
  Receipt Date: 20041214
  Transmission Date: 20050328
  Serious: Yes (Hospitalization)
  Sender: FDA-Public Use
  Company Number: DE-ABBOTT-04P-062-0283716-00

PATIENT
  Age: 20 Year
  Sex: Female

DRUGS (2)
  1. ERGENYL TABLETS [Suspect]
     Indication: EPILEPSY
     Dosage: DOSE SLOWLY REDUCED
     Route: 048
     Dates: start: 19870101, end: 20040101
  2. ERGENYL TABLETS [Suspect]
     Dosage: DOSE SLOWLY REDUCED
     Route: 048
     Dates: start: 20040101, end: 20040101

REACTIONS (1)
  - OVARIAN CYST [None]
